FAERS Safety Report 10565114 (Version 4)
Quarter: 2015Q2

REPORT INFORMATION
  Report Type: Report from Study
  Country: FR (occurrence: FR)
  Receive Date: 20141105
  Receipt Date: 20150415
  Transmission Date: 20150821
  Serious: Yes (Hospitalization)
  Sender: FDA-Public Use
  Company Number: FR-BIOGENIDEC-2013BI120627

PATIENT
  Age: 52 Year
  Sex: Female

DRUGS (10)
  1. STILNOX [Concomitant]
     Active Substance: ZOLPIDEM TARTRATE
     Indication: INSOMNIA
     Dates: start: 20070101
  2. COLECALCIFEROL [Concomitant]
     Active Substance: CHOLECALCIFEROL
     Indication: MULTIPLE SCLEROSIS
     Dates: start: 20050101
  3. GYLENYA [Concomitant]
     Indication: MULTIPLE SCLEROSIS RELAPSE
     Dates: start: 20130208
  4. DAFALGAN [Concomitant]
     Active Substance: ACETAMINOPHEN
  5. FAMPYRA [Suspect]
     Active Substance: DALFAMPRIDINE
     Indication: MULTIPLE SCLEROSIS
     Dates: start: 20130423, end: 20130506
  6. DANTRIUM [Concomitant]
     Active Substance: DANTROLENE SODIUM
     Indication: MUSCLE SPASTICITY
     Dates: start: 20100201
  7. DEROXATE [Concomitant]
     Indication: DEPRESSION
     Dates: start: 20070101
  8. DITROPAN [Concomitant]
     Active Substance: OXYBUTYNIN CHLORIDE
     Indication: MUSCLE SPASTICITY
     Dates: start: 20100601
  9. UROREC [Concomitant]
     Active Substance: SILODOSIN
  10. CODEINE [Concomitant]
     Active Substance: CODEINE

REACTIONS (1)
  - Multiple sclerosis relapse [Recovered/Resolved]

NARRATIVE: CASE EVENT DATE: 20131110
